FAERS Safety Report 4700742-4 (Version None)
Quarter: 2005Q2

REPORT INFORMATION
  Report Type: 
  Country: None (occurrence: None)
  Receive Date: 20050627
  Receipt Date: 20050607
  Transmission Date: 20051028
  Serious: Yes (Hospitalization)
  Sender: FDA-Public Use
  Company Number: 2005FR-00010

PATIENT
  Age: 75 Year
  Sex: Female

DRUGS (6)
  1. ASPIRIN [Suspect]
     Indication: PROPHYLAXIS
     Dosage: 75MG, UNKNOWN, ORAL
     Route: 048
     Dates: start: 20050427, end: 20050516
  2. BISOPROLOL [Concomitant]
  3. SIMVASTATIN [Concomitant]
  4. LOPERAMIDE [Concomitant]
  5. ACETAMINOPHEN W/ CODEINE [Concomitant]
  6. BUDESONIDE [Concomitant]

REACTIONS (2)
  - GASTROINTESTINAL HAEMORRHAGE [None]
  - MELAENA [None]
